FAERS Safety Report 10791505 (Version 1)
Quarter: 2015Q1

REPORT INFORMATION
  Report Type: Spontaneous
  Country: BR (occurrence: BR)
  Receive Date: 20150213
  Receipt Date: 20150213
  Transmission Date: 20150721
  Serious: Yes (Other)
  Sender: FDA-Public Use
  Company Number: BR-GLAXOSMITHKLINE-BR2015GSK013910

PATIENT
  Age: 62 Year
  Sex: Male
  Weight: 53 kg

DRUGS (3)
  1. COMBODART [Suspect]
     Active Substance: DUTASTERIDE\TAMSULOSIN
     Indication: PROSTATIC ATROPHY
     Dosage: 1 UNK, QD
     Route: 048
  2. ACETYLCYSTEINE. [Concomitant]
     Active Substance: ACETYLCYSTEINE
     Dosage: 200 MG, UNK
     Route: 048
  3. DIAZEPAN [Concomitant]
     Indication: ANXIOLYTIC THERAPY
     Dosage: 5 MG, QD
     Route: 048

REACTIONS (1)
  - Urinary retention [Recovering/Resolving]

NARRATIVE: CASE EVENT DATE: 20150202
